FAERS Safety Report 8597734-4 (Version None)
Quarter: 2012Q3

REPORT INFORMATION
  Report Type: 
  Country: None (occurrence: None)
  Receive Date: 20120816
  Receipt Date: 20120809
  Transmission Date: 20120928
  Serious: Yes (Life-Threatening, Hospitalization, Other)
  Sender: FDA-Public Use
  Company Number: PHHY2010CA03058

PATIENT
  Sex: Male

DRUGS (5)
  1. CLOZARIL [Suspect]
     Indication: SCHIZOPHRENIA
     Dosage: 200 UKN, UNK
     Route: 048
     Dates: start: 20061117, end: 20120802
  2. VALPROATE SODIUM [Concomitant]
  3. ELAVIL [Concomitant]
     Dosage: 2.5 MG, QHS
  4. HALDOL [Concomitant]
     Dosage: 100 MG, UNK
  5. COGENTIN [Concomitant]
     Dosage: 2 MG, QHS

REACTIONS (5)
  - ANAEMIA [None]
  - HEPATITIS C [None]
  - NEUTROPENIA [None]
  - THROMBOCYTOPENIA [None]
  - PLATELET COUNT DECREASED [None]
